FAERS Safety Report 12214645 (Version 4)
Quarter: 2016Q2

REPORT INFORMATION
  Report Type: Spontaneous
  Country: US (occurrence: US)
  Receive Date: 20160328
  Receipt Date: 20160629
  Transmission Date: 20160815
  Serious: Yes (Hospitalization, Other)
  Sender: FDA-Public Use
  Company Number: US-PFIZER INC-2016177274

PATIENT
  Age: 54 Year
  Sex: Male
  Weight: 131 kg

DRUGS (3)
  1. LYRICA [Suspect]
     Active Substance: PREGABALIN
     Indication: PAIN IN EXTREMITY
     Dosage: 100 MG, 3X/DAY
     Route: 048
     Dates: start: 2015
  2. LYRICA [Suspect]
     Active Substance: PREGABALIN
     Dosage: 100 MG, 3X/DAY
  3. LYRICA [Suspect]
     Active Substance: PREGABALIN
     Dosage: 100 MG, 3X/DAY
     Dates: start: 2015

REACTIONS (11)
  - Gait disturbance [Unknown]
  - Impaired healing [Unknown]
  - Tendon disorder [Unknown]
  - Tendon pain [Unknown]
  - Peripheral swelling [Not Recovered/Not Resolved]
  - Radiation skin injury [Not Recovered/Not Resolved]
  - Neoplasm [Unknown]
  - Pain in extremity [Not Recovered/Not Resolved]
  - Back disorder [Unknown]
  - Fibroma [Not Recovered/Not Resolved]
  - Pain [Not Recovered/Not Resolved]
